FAERS Safety Report 13266308 (Version 1)
Quarter: 2017Q1

REPORT INFORMATION
  Report Type: Spontaneous
  Country: IT (occurrence: IT)
  Receive Date: 20170223
  Receipt Date: 20170223
  Transmission Date: 20170428
  Serious: Yes (Hospitalization)
  Sender: FDA-Public Use
  Company Number: IT-ALK-ABELLO A/S-1063543

PATIENT
  Sex: Male

DRUGS (1)
  1. GRASTEK [Suspect]
     Active Substance: PHLEUM PRATENSE POLLEN
     Route: 060

REACTIONS (4)
  - Lip oedema [Unknown]
  - Tongue oedema [Unknown]
  - Laryngeal oedema [Unknown]
  - Dyspnoea [Unknown]
